FAERS Safety Report 21579318 (Version 1)
Quarter: 2022Q4

REPORT INFORMATION
  Report Type: Spontaneous
  Country: US (occurrence: None)
  Receive Date: 20221110
  Receipt Date: 20221110
  Transmission Date: 20230113
  Serious: Yes (Hospitalization)
  Sender: FDA-Public Use
  Company Number: None

PATIENT
  Age: 85 Year
  Sex: Female
  Weight: 126.7 kg

DRUGS (1)
  1. APIXABAN [Suspect]
     Active Substance: APIXABAN
     Indication: Atrial fibrillation
     Dosage: FREQUENCY : TWICE A DAY;?
     Route: 048
     Dates: start: 20211216

REACTIONS (8)
  - Depressed level of consciousness [None]
  - Gastritis erosive [None]
  - Therapy interrupted [None]
  - Mental status changes [None]
  - Haemoglobin decreased [None]
  - Haematocrit decreased [None]
  - Helicobacter test [None]
  - Platelet count decreased [None]
